FAERS Safety Report 9697453 (Version 2)
Quarter: 2013Q4

REPORT INFORMATION
  Report Type: Spontaneous
  Country: BE (occurrence: BE)
  Receive Date: 20131120
  Receipt Date: 20131206
  Transmission Date: 20140711
  Serious: Yes (Other)
  Sender: FDA-Public Use
  Company Number: PHHY2013BE132243

PATIENT
  Sex: 0

DRUGS (1)
  1. ZOMETA [Suspect]
     Indication: METASTASES TO BONE
     Dosage: 4 MG, UNK
     Dates: start: 2008, end: 201105

REACTIONS (5)
  - Osteonecrosis of jaw [Not Recovered/Not Resolved]
  - Jaw fracture [Unknown]
  - Osteitis [Unknown]
  - Infection [Unknown]
  - Pain in jaw [Unknown]
